FAERS Safety Report 21532787 (Version 1)
Quarter: 2022Q4

REPORT INFORMATION
  Report Type: Spontaneous
  Country: US (occurrence: US)
  Receive Date: 20221101
  Receipt Date: 20221101
  Transmission Date: 20230113
  Serious: No
  Sender: FDA-Public Use
  Company Number: US-AUROBINDO-AUR-APL-2022-024079

PATIENT

DRUGS (1)
  1. METOPROLOL [Suspect]
     Active Substance: METOPROLOL
     Indication: Product used for unknown indication
     Dosage: UNK
     Route: 065

REACTIONS (8)
  - Pigmentation disorder [Not Recovered/Not Resolved]
  - Nodule [Recovering/Resolving]
  - Skin mass [Recovering/Resolving]
  - Visual impairment [Recovering/Resolving]
  - Eye movement disorder [Recovering/Resolving]
  - Wrong technique in product usage process [Unknown]
  - Product label issue [Unknown]
  - Drug ineffective [Unknown]
